FAERS Safety Report 11643398 (Version 2)
Quarter: 2015Q4

REPORT INFORMATION
  Report Type: Spontaneous
  Country: JP (occurrence: JP)
  Receive Date: 20151020
  Receipt Date: 20151119
  Transmission Date: 20160304
  Serious: Yes (Other)
  Sender: FDA-Public Use
  Company Number: JP-JNJFOC-20151012417

PATIENT
  Sex: Female

DRUGS (1)
  1. DOXIL [Suspect]
     Active Substance: DOXORUBICIN HYDROCHLORIDE
     Indication: OVARIAN CANCER RECURRENT
     Route: 042

REACTIONS (5)
  - Melaena [Unknown]
  - Hepatic function abnormal [Unknown]
  - Ovarian cancer recurrent [Unknown]
  - Proteinuria [Not Recovered/Not Resolved]
  - Ileus [Unknown]
